FAERS Safety Report 8228589-5 (Version None)
Quarter: 2012Q1

REPORT INFORMATION
  Report Type: 
  Country: None (occurrence: None)
  Receive Date: 20120322
  Receipt Date: 20110427
  Transmission Date: 20120608
  Serious: Yes (Other)
  Sender: FDA-Public Use
  Company Number: US-BRISTOL-MYERS SQUIBB COMPANY-15633183

PATIENT
  Age: 4 Decade
  Sex: Male

DRUGS (4)
  1. ERBITUX [Suspect]
     Indication: COLORECTAL CANCER
     Dosage: 2 DOSES TAKEN
     Route: 042
  2. OXALIPLATIN [Suspect]
     Indication: COLORECTAL CANCER
  3. LEUCOVORIN CALCIUM [Suspect]
     Indication: COLORECTAL CANCER
  4. FLUOROURACIL [Suspect]
     Indication: COLORECTAL CANCER

REACTIONS (1)
  - RASH [None]
